FAERS Safety Report 10467224 (Version 1)
Quarter: 2014Q3

REPORT INFORMATION
  Report Type: Spontaneous
  Country: JP (occurrence: JP)
  Receive Date: 20140922
  Receipt Date: 20140922
  Transmission Date: 20150326
  Serious: Yes (Hospitalization, Other)
  Sender: FDA-Public Use
  Company Number: PHHY2010JP096930

PATIENT
  Age: 83 Year
  Sex: Male

DRUGS (2)
  1. GLIVEC [Suspect]
     Active Substance: IMATINIB MESYLATE
     Dosage: UNK UKN, UNK
  2. WARFARIN K [Concomitant]
     Active Substance: WARFARIN POTASSIUM
     Dosage: UNK UKN, UNK

REACTIONS (3)
  - Platelet count decreased [Unknown]
  - Skin cancer [Unknown]
  - Ileus [Unknown]
